FAERS Safety Report 9332974 (Version 1)
Quarter: 2013Q2

REPORT INFORMATION
  Report Type: Spontaneous
  Country: US (occurrence: None)
  Receive Date: 20130603
  Receipt Date: 20130603
  Transmission Date: 20140414
  Serious: Yes (Hospitalization)
  Sender: FDA-Public Use
  Company Number: 2013AP005457

PATIENT
  Age: 88 Year
  Sex: Female

DRUGS (1)
  1. IBANDRONATE SODIUM [Suspect]

REACTIONS (7)
  - Myalgia [None]
  - Pain in extremity [None]
  - Oesophageal disorder [None]
  - Regurgitation [None]
  - Eructation [None]
  - Cerebrovascular accident [None]
  - Diarrhoea [None]
